FAERS Safety Report 7898594-7 (Version None)
Quarter: 2011Q4

REPORT INFORMATION
  Report Type: 
  Country: None (occurrence: None)
  Receive Date: 20111107
  Receipt Date: 20111028
  Transmission Date: 20120403
  Serious: Yes (Other)
  Sender: FDA-Public Use
  Company Number: US-PERRIGO-11US009366

PATIENT
  Sex: Female
  Weight: 74.376 kg

DRUGS (3)
  1. DIPHENHYDRAMINE HCL [Suspect]
     Indication: PRURITUS
     Dosage: 1 TEASPOON, AT 1530 HOURS
     Route: 048
     Dates: start: 20110928, end: 20110928
  2. DIPHENHYDRAMINE HCL [Suspect]
     Dosage: 1 TEASPOON, AT 2030 HOURS
     Route: 048
     Dates: start: 20110928, end: 20110928
  3. DIPHENHYDRAMINE HCL [Suspect]
     Indication: URTICARIA
     Dosage: 1/2 TEASPOON, AT 1330 HOURS
     Route: 048
     Dates: start: 20110928, end: 20110928

REACTIONS (12)
  - SKELETAL INJURY [None]
  - HEAD INJURY [None]
  - THIRST [None]
  - LACERATION [None]
  - DRUG INEFFECTIVE FOR UNAPPROVED INDICATION [None]
  - LOSS OF CONSCIOUSNESS [None]
  - EXPIRED DRUG ADMINISTERED [None]
  - CONTUSION [None]
  - SPEECH DISORDER [None]
  - MENTAL IMPAIRMENT [None]
  - DIZZINESS [None]
  - INCORRECT DOSE ADMINISTERED [None]
